FAERS Safety Report 12526766 (Version 1)
Quarter: 2016Q3

REPORT INFORMATION
  Report Type: Spontaneous
  Country: NO (occurrence: NO)
  Receive Date: 20160705
  Receipt Date: 20160705
  Transmission Date: 20161109
  Serious: Yes (Hospitalization)
  Sender: FDA-Public Use
  Company Number: NO-WATSON-2016-14205

PATIENT
  Age: 14 Year
  Sex: Female
  Weight: 91 kg

DRUGS (4)
  1. METAMIZOLE SODIUM (UNKNOWN) [Suspect]
     Active Substance: METAMIZOLE SODIUM
     Indication: PRODUCT USED FOR UNKNOWN INDICATION
     Dosage: 3 G, SELF-INTOXICATED DURING THE NIGHT, INTAKE SEPARATED IN TWO BY 5.5 HOURS
     Route: 048
     Dates: start: 20160527
  2. DOXYCYCLINE. [Suspect]
     Active Substance: DOXYCYCLINE
     Indication: PRODUCT USED FOR UNKNOWN INDICATION
     Dosage: 2 G, SELF-INTOXICATED DURING THE NIGHT, INTAKE SEPARATED IN TWO BY 5.5 HOURS
     Route: 048
     Dates: start: 20160527
  3. PARACETAMOL  (UNKNOWN) [Suspect]
     Active Substance: ACETAMINOPHEN
     Indication: PRODUCT USED FOR UNKNOWN INDICATION
     Dosage: 12 G, SELF-INTOXICATED DURING THE NIGHT, INTAKE SEPARATED IN TWO BY 5.5 HOURS
     Route: 048
     Dates: start: 20160527
  4. IBUX [Suspect]
     Active Substance: IBUPROFEN
     Indication: PRODUCT USED FOR UNKNOWN INDICATION
     Dosage: 2 G, SELF-INTOXICATED DURING THE NIGHT, INTAKE SEPARATED IN TWO BY 5.5 HOURS
     Route: 048
     Dates: start: 20160527

REACTIONS (3)
  - Nausea [Recovered/Resolved]
  - Abdominal pain upper [Recovered/Resolved]
  - Vomiting [Recovered/Resolved]

NARRATIVE: CASE EVENT DATE: 20160527
